FAERS Safety Report 16126849 (Version 1)
Quarter: 2019Q1

REPORT INFORMATION
  Report Type: Spontaneous
  Country: IT (occurrence: IT)
  Receive Date: 20190328
  Receipt Date: 20190328
  Transmission Date: 20190418
  Serious: Yes (Death, Life-Threatening, Hospitalization, Other)
  Sender: FDA-Public Use
  Company Number: IT-ACCORD-115109

PATIENT
  Age: 72 Year
  Sex: Male

DRUGS (2)
  1. PEMETREXED. [Suspect]
     Active Substance: PEMETREXED
     Indication: EPITHELIOID MESOTHELIOMA
     Dates: start: 2016, end: 201611
  2. CARBOPLATIN. [Suspect]
     Active Substance: CARBOPLATIN
     Indication: EPITHELIOID MESOTHELIOMA
     Dates: start: 2016, end: 201611

REACTIONS (7)
  - Cardiac failure [Unknown]
  - Off label use [Unknown]
  - Radiation pneumonitis [Fatal]
  - Interstitial lung disease [Fatal]
  - Respiratory failure [Not Recovered/Not Resolved]
  - Oedema peripheral [Unknown]
  - Atrial fibrillation [Unknown]

NARRATIVE: CASE EVENT DATE: 201704
